FAERS Safety Report 6176864-0 (Version None)
Quarter: 2009Q2

REPORT INFORMATION
  Report Type: 
  Country: None (occurrence: None)
  Receive Date: 20090501
  Receipt Date: 20081118
  Transmission Date: 20091009
  Serious: Yes (Hospitalization)
  Sender: FDA-Public Use
  Company Number: US-ALEXION-A200800344

PATIENT

DRUGS (12)
  1. SOLIRIS [Suspect]
     Indication: PAROXYSMAL NOCTURNAL HAEMOGLOBINURIA
     Dosage: 600 MG, UNK
     Route: 042
     Dates: start: 20071011, end: 20071031
  2. SOLIRIS [Suspect]
     Dosage: 900 MG, SINGLE
     Route: 042
     Dates: start: 20080117, end: 20080117
  3. SOLIRIS [Suspect]
     Dosage: 900 MG, Q2W
     Route: 042
     Dates: start: 20081003, end: 20081114
  4. PRILOSEC [Concomitant]
     Dosage: 20 MG, QD
     Route: 048
  5. LISINOPRIL [Concomitant]
     Dosage: 10 MG, QD
     Route: 048
  6. PREDNISONE [Concomitant]
     Dosage: 30 MG, QD
     Route: 048
  7. ALLOPURINOL [Concomitant]
     Dosage: 300 MG, QD
     Route: 048
  8. UROCIT [Concomitant]
     Dosage: 10/80 MG, QD
     Route: 048
  9. IRON [Concomitant]
     Dosage: UNK, QD
     Route: 048
  10. FOSAMAX [Concomitant]
     Dosage: 70 MG, QWEEK
     Route: 048
  11. VICODIN [Concomitant]
     Dosage: UNK, PRN
     Route: 048
  12. OMEPRAZOLE [Concomitant]
     Dosage: 10 MG, QD
     Route: 048

REACTIONS (4)
  - ENDOMETRIAL CANCER STAGE I [None]
  - HAEMATOCRIT DECREASED [None]
  - HAEMOGLOBIN DECREASED [None]
  - POST PROCEDURAL HAEMORRHAGE [None]
